FAERS Safety Report 26076787 (Version 2)
Quarter: 2025Q4

REPORT INFORMATION
  Report Type: Report from Study
  Country: EU (occurrence: EU)
  Receive Date: 20251121
  Receipt Date: 20251215
  Transmission Date: 20260119
  Serious: Yes (Death, Hospitalization)
  Sender: MYLAN
  Company Number: EU-INCYTE CORPORATION-2024IN006593

PATIENT
  Age: 76 Year
  Sex: Female
  Weight: 56 kg

DRUGS (16)
  1. LENALIDOMIDE [Suspect]
     Active Substance: LENALIDOMIDE
     Indication: Diffuse large B-cell lymphoma
     Dosage: 25 MILLIGRAM, QD
     Route: 061
     Dates: start: 20240521, end: 20240524
  2. LENALIDOMIDE [Suspect]
     Active Substance: LENALIDOMIDE
     Dosage: 25 MILLIGRAM, QD
     Route: 061
     Dates: start: 20240521, end: 20240524
  3. LENALIDOMIDE [Suspect]
     Active Substance: LENALIDOMIDE
     Dosage: 25 MILLIGRAM, QD
     Route: 048
     Dates: start: 20240521, end: 20240524
  4. LENALIDOMIDE [Suspect]
     Active Substance: LENALIDOMIDE
     Dosage: 25 MILLIGRAM, QD
     Route: 048
     Dates: start: 20240521, end: 20240524
  5. LENALIDOMIDE [Suspect]
     Active Substance: LENALIDOMIDE
     Dosage: 10 MILLIGRAM, QD (FOR 21 DAYS)
     Route: 061
     Dates: start: 20240606, end: 20240617
  6. LENALIDOMIDE [Suspect]
     Active Substance: LENALIDOMIDE
     Dosage: 10 MILLIGRAM, QD (FOR 21 DAYS)
     Route: 061
     Dates: start: 20240606, end: 20240617
  7. LENALIDOMIDE [Suspect]
     Active Substance: LENALIDOMIDE
     Dosage: 10 MILLIGRAM, QD (FOR 21 DAYS)
     Route: 048
     Dates: start: 20240606, end: 20240617
  8. LENALIDOMIDE [Suspect]
     Active Substance: LENALIDOMIDE
     Dosage: 10 MILLIGRAM, QD (FOR 21 DAYS)
     Route: 048
     Dates: start: 20240606, end: 20240617
  9. TAFASITAMAB [Suspect]
     Active Substance: TAFASITAMAB
     Indication: Diffuse large B-cell lymphoma
     Dosage: 670 MILLIGRAM, QW (FOR 1ST CYCLE)
     Dates: start: 20240521, end: 20240613
  10. TAFASITAMAB [Suspect]
     Active Substance: TAFASITAMAB
     Dosage: 670 MILLIGRAM, QW (FOR 1ST CYCLE)
     Route: 042
     Dates: start: 20240521, end: 20240613
  11. TAFASITAMAB [Suspect]
     Active Substance: TAFASITAMAB
     Dosage: 670 MILLIGRAM, QW (FOR 1ST CYCLE)
     Route: 042
     Dates: start: 20240521, end: 20240613
  12. TAFASITAMAB [Suspect]
     Active Substance: TAFASITAMAB
     Dosage: 670 MILLIGRAM, QW (FOR 1ST CYCLE)
     Dates: start: 20240521, end: 20240613
  13. PREDNISONE [Concomitant]
     Active Substance: PREDNISONE
     Indication: Lymphoma
     Dosage: 50 MILLIGRAM, QD
     Route: 061
     Dates: start: 20240614
  14. PREDNISONE [Concomitant]
     Active Substance: PREDNISONE
     Dosage: 50 MILLIGRAM, QD
     Route: 048
     Dates: start: 20240614
  15. PREDNISONE [Concomitant]
     Active Substance: PREDNISONE
     Dosage: 50 MILLIGRAM, QD
     Route: 048
     Dates: start: 20240614
  16. PREDNISONE [Concomitant]
     Active Substance: PREDNISONE
     Dosage: 50 MILLIGRAM, QD
     Route: 061
     Dates: start: 20240614

REACTIONS (2)
  - Disease progression [Fatal]
  - Infection [Recovered/Resolved]

NARRATIVE: CASE EVENT DATE: 20240616
